FAERS Safety Report 7620640-6 (Version None)
Quarter: 2011Q3

REPORT INFORMATION
  Report Type: 
  Country: None (occurrence: None)
  Receive Date: 20110719
  Receipt Date: 20110627
  Transmission Date: 20111222
  Serious: Yes (Hospitalization)
  Sender: FDA-Public Use
  Company Number: US-GLAXOSMITHKLINE-A0806800A

PATIENT
  Age: 42 Year
  Sex: Male
  Weight: 72.3 kg

DRUGS (6)
  1. LISINOPRIL [Concomitant]
  2. AVANDIA [Suspect]
     Indication: DIABETES MELLITUS
     Dosage: 4MG TWICE PER DAY
     Route: 048
     Dates: start: 20051221, end: 20060912
  3. GLIPIZIDE [Concomitant]
  4. HYDROCHLOROTHIAZIDE [Concomitant]
  5. FLEXERIL [Concomitant]
  6. INSULIN [Concomitant]

REACTIONS (2)
  - MYOCARDIAL INFARCTION [None]
  - ARTERIOSCLEROSIS CORONARY ARTERY [None]
